FAERS Safety Report 18086878 (Version 1)
Quarter: 2020Q3

REPORT INFORMATION
  Report Type: Spontaneous
  Country: US (occurrence: US)
  Receive Date: 20200729
  Receipt Date: 20200729
  Transmission Date: 20201103
  Serious: Yes (Other)
  Sender: FDA-Public Use
  Company Number: US-LEADINGPHARMA-US-2020LEALIT00116

PATIENT
  Age: 6 Year
  Sex: Female

DRUGS (9)
  1. VALPROATE [Concomitant]
     Active Substance: VALPROIC ACID
     Indication: PRODUCT USED FOR UNKNOWN INDICATION
     Route: 065
  2. KETAMINE [Interacting]
     Active Substance: KETAMINE
     Dosage: 0.5?2.5 MG/KG/H
     Route: 065
  3. LORAZEPAM TABLETS USP [Suspect]
     Active Substance: LORAZEPAM
     Indication: SEIZURE
     Route: 042
  4. OXCARBAZEPINE. [Concomitant]
     Active Substance: OXCARBAZEPINE
     Indication: PRODUCT USED FOR UNKNOWN INDICATION
     Route: 065
  5. TOPIRAMATE. [Concomitant]
     Active Substance: TOPIRAMATE
     Indication: PRODUCT USED FOR UNKNOWN INDICATION
     Route: 065
  6. CLONAZEPAM. [Concomitant]
     Active Substance: CLONAZEPAM
     Indication: PRODUCT USED FOR UNKNOWN INDICATION
     Route: 065
  7. MIDAZOLAM. [Interacting]
     Active Substance: MIDAZOLAM
     Indication: SEIZURE
     Dosage: 1.5 MG/KG/H
     Route: 065
  8. DIAZEPAM. [Suspect]
     Active Substance: DIAZEPAM
     Indication: SEIZURE
     Route: 054
  9. KETAMINE [Interacting]
     Active Substance: KETAMINE
     Indication: SEIZURE
     Dosage: 2 MG/KG
     Route: 040

REACTIONS (1)
  - Drug ineffective for unapproved indication [Unknown]
